FAERS Safety Report 7779234-4 (Version None)
Quarter: 2011Q3

REPORT INFORMATION
  Report Type: 
  Country: None (occurrence: None)
  Receive Date: 20110926
  Receipt Date: 20110916
  Transmission Date: 20111222
  Serious: Yes (Other)
  Sender: FDA-Public Use
  Company Number: US-AMGEN-USASP2011047959

PATIENT
  Age: 81 Year
  Sex: Male

DRUGS (5)
  1. NPLATE [Suspect]
     Indication: IDIOPATHIC THROMBOCYTOPENIC PURPURA
     Dosage: 1 MUG/KG, UNK
     Dates: start: 20110113
  2. MECLIZINE                          /00072801/ [Concomitant]
  3. METOZOLV [Concomitant]
     Dosage: 2 MG, QD
  4. METHADONE HCL [Concomitant]
     Dosage: UNK MG, UNK
  5. BUTALBITAL ACETAMINOPHEN AND CAFFEINE [Concomitant]

REACTIONS (1)
  - THERAPEUTIC RESPONSE DECREASED [None]
